FAERS Safety Report 9938698 (Version 2)
Quarter: 2014Q2

REPORT INFORMATION
  Report Type: Spontaneous
  Country: JP (occurrence: JP)
  Receive Date: 20140303
  Receipt Date: 20140407
  Transmission Date: 20141212
  Serious: Yes (Hospitalization, Other)
  Sender: FDA-Public Use
  Company Number: JP-JNJFOC-20140215953

PATIENT
  Age: 73 Year
  Sex: Female
  Weight: 54 kg

DRUGS (10)
  1. XARELTO [Suspect]
     Indication: CEREBROVASCULAR ACCIDENT PROPHYLAXIS
     Route: 048
     Dates: start: 20140123, end: 20140220
  2. XARELTO [Suspect]
     Indication: CEREBROVASCULAR ACCIDENT PROPHYLAXIS
     Route: 048
     Dates: start: 20131205, end: 20140122
  3. XARELTO [Suspect]
     Indication: ATRIAL FIBRILLATION
     Route: 048
     Dates: start: 20131205, end: 20140122
  4. XARELTO [Suspect]
     Indication: ATRIAL FIBRILLATION
     Route: 048
     Dates: start: 20140123, end: 20140220
  5. VASOLAN [Concomitant]
     Route: 048
     Dates: start: 20130603
  6. DEPAS [Concomitant]
     Route: 048
     Dates: start: 20100210
  7. MAINTATE [Concomitant]
     Route: 048
     Dates: start: 20130220
  8. CRESTOR [Concomitant]
     Route: 048
     Dates: start: 20100210
  9. DIOVAN [Concomitant]
     Route: 048
     Dates: start: 20100210
  10. PREDONINE [Concomitant]
     Indication: ORGANISING PNEUMONIA
     Route: 048
     Dates: start: 20140220, end: 20140306

REACTIONS (2)
  - Organising pneumonia [Recovered/Resolved]
  - Haemorrhage subcutaneous [Unknown]
